FAERS Safety Report 4700100-2 (Version None)
Quarter: 2005Q2

REPORT INFORMATION
  Report Type: 
  Country: None (occurrence: None)
  Receive Date: 20050623
  Receipt Date: 20050613
  Transmission Date: 20051028
  Serious: Yes (Other)
  Sender: FDA-Public Use
  Company Number: 220009M05USA

PATIENT
  Age: 7 Year
  Sex: Male
  Weight: 18 kg

DRUGS (1)
  1. SAIZEN [Suspect]
     Indication: GROWTH HORMONE DEFICIENCY
     Dosage: 0.88 6 IN 1 WEEKS, SUBCUTANEOUS
     Route: 058
     Dates: start: 20030131, end: 20050530

REACTIONS (2)
  - ASEPTIC NECROSIS BONE [None]
  - JOINT DISLOCATION [None]
